FAERS Safety Report 16719031 (Version 1)
Quarter: 2019Q3

REPORT INFORMATION
  Report Type: Spontaneous
  Country: DE (occurrence: DE)
  Receive Date: 20190820
  Receipt Date: 20190820
  Transmission Date: 20191005
  Serious: Yes (Other)
  Sender: FDA-Public Use
  Company Number: DE-ROCHE-2385415

PATIENT
  Sex: Male

DRUGS (1)
  1. LUCENTIS [Suspect]
     Active Substance: RANIBIZUMAB
     Indication: DIABETIC RETINAL OEDEMA
     Route: 065
     Dates: start: 20190515, end: 20190807

REACTIONS (3)
  - Feeding disorder [Unknown]
  - Circulatory collapse [Unknown]
  - Asthenia [Unknown]

NARRATIVE: CASE EVENT DATE: 20190515
